FAERS Safety Report 6813794-2 (Version None)
Quarter: 2010Q3

REPORT INFORMATION
  Report Type: 
  Country: None (occurrence: None)
  Receive Date: 20100701
  Receipt Date: 20100621
  Transmission Date: 20110219
  Serious: Yes (Hospitalization, Other)
  Sender: FDA-Public Use
  Company Number: DE-ABBOTT-10P-062-0634346-00

PATIENT
  Age: 69 Year
  Sex: Male
  Weight: 78 kg

DRUGS (19)
  1. ZEMPLAR [Suspect]
     Indication: RENAL FAILURE
     Route: 048
     Dates: start: 20090525, end: 20100118
  2. ZEMPLAR [Suspect]
     Route: 048
     Dates: start: 20090704
  3. ZEMPLAR [Suspect]
     Route: 048
     Dates: start: 20091023
  4. ACETYLSALICYLIC ACID [Concomitant]
     Indication: PRODUCT USED FOR UNKNOWN INDICATION
     Route: 048
     Dates: start: 20081107
  5. PENTALONG 80 [Concomitant]
     Indication: PRODUCT USED FOR UNKNOWN INDICATION
     Route: 048
     Dates: start: 20081017
  6. MOLSIDOMIN [Concomitant]
     Indication: HYPERTENSION
     Route: 048
     Dates: start: 20081024
  7. CARVEDILOL [Concomitant]
     Indication: HYPERTENSION
     Dosage: 2 TABLETS DAILY
     Route: 048
     Dates: start: 20080218
  8. CARVEDILOL [Concomitant]
     Indication: CORONARY ARTERY DISEASE
  9. DIOVAN 160 [Concomitant]
     Indication: HYPERTENSION
     Dosage: 1 TABLET DAILY
     Route: 048
     Dates: start: 20080811
  10. AMLODIPINE [Concomitant]
     Indication: HYPERTENSION
     Route: 048
     Dates: start: 20071203
  11. MOXONIDIN [Concomitant]
     Indication: PRODUCT USED FOR UNKNOWN INDICATION
     Dosage: 0.3MG DAILY
     Route: 048
     Dates: start: 20041014
  12. HYDROCHLOROTHIAZIDE [Concomitant]
     Indication: PRODUCT USED FOR UNKNOWN INDICATION
     Route: 048
     Dates: start: 20041115
  13. TORSEMIDE [Concomitant]
     Indication: PRODUCT USED FOR UNKNOWN INDICATION
     Route: 048
     Dates: start: 20030115
  14. NOVONORM 1.0 [Concomitant]
     Indication: DIABETES MELLITUS
     Route: 048
     Dates: start: 20050615
  15. SIMVAHEXAL 40 [Concomitant]
     Indication: LIPID METABOLISM DISORDER
     Dosage: 40MG DAILY
     Route: 048
     Dates: start: 20080130
  16. LANTUS 100 IU [Concomitant]
     Indication: DIABETES MELLITUS
     Dosage: 20 UNIT DAILY
     Route: 058
     Dates: start: 20090130
  17. CA ACETAT NEFRO [Concomitant]
     Indication: BLOOD PHOSPHORUS INCREASED
     Route: 048
     Dates: start: 20070829
  18. FOSRENOL 750 [Concomitant]
     Indication: RENAL FAILURE
     Route: 048
     Dates: start: 20071126
  19. ARANESP [Concomitant]
     Indication: ANAEMIA
     Dates: start: 20061208

REACTIONS (13)
  - AORTIC VALVE DISEASE [None]
  - AORTIC VALVE DISEASE MIXED [None]
  - BLOOD PRESSURE DECREASED [None]
  - CHILLS [None]
  - CORONARY ARTERY DISEASE [None]
  - DYSPNOEA [None]
  - EMPHYSEMA [None]
  - ENTEROCOCCAL INFECTION [None]
  - HYPERTENSION [None]
  - MYOCARDIAL INFARCTION [None]
  - PYREXIA [None]
  - SOMNOLENCE [None]
  - STAPHYLOCOCCAL INFECTION [None]
